FAERS Safety Report 6363327-2 (Version None)
Quarter: 2009Q3

REPORT INFORMATION
  Report Type: 
  Country: None (occurrence: None)
  Receive Date: 20090919
  Receipt Date: 20090622
  Transmission Date: 20100115
  Serious: No
  Sender: FDA-Public Use
  Company Number: US-ABBOTT-09P-163-0581553-00

PATIENT
  Weight: 63.56 kg

DRUGS (4)
  1. HUMIRA [Suspect]
     Indication: RHEUMATOID ARTHRITIS
     Dates: start: 20081101
  2. ZOLOFT [Concomitant]
     Indication: DEPRESSION
  3. DIOVAN HCT [Concomitant]
     Indication: HYPERTENSION
     Dosage: 160/12.5MG DAILY
  4. ZOCOR [Concomitant]
     Indication: BLOOD CHOLESTEROL

REACTIONS (3)
  - DRUG DOSE OMISSION [None]
  - INJECTION SITE HAEMORRHAGE [None]
  - INJECTION SITE IRRITATION [None]
